FAERS Safety Report 5292111-6 (Version None)
Quarter: 2007Q2

REPORT INFORMATION
  Report Type: 
  Country: None (occurrence: None)
  Receive Date: 20070410
  Receipt Date: 20070327
  Transmission Date: 20071010
  Serious: Yes (Other)
  Sender: FDA-Public Use
  Company Number: PHEH2007US03611

PATIENT
  Sex: Female
  Weight: 50.793 kg

DRUGS (3)
  1. LAMISIL [Suspect]
     Route: 048
  2. AVANDIA [Concomitant]
  3. NEXIUM [Concomitant]

REACTIONS (1)
  - BLOOD GLUCOSE INCREASED [None]
